FAERS Safety Report 7275503-5 (Version None)
Quarter: 2011Q1

REPORT INFORMATION
  Report Type: 
  Country: None (occurrence: None)
  Receive Date: 20110204
  Receipt Date: 20110125
  Transmission Date: 20110831
  Serious: Yes (Other)
  Sender: FDA-Public Use
  Company Number: AU-JNJFOC-20110106004

PATIENT
  Sex: Male

DRUGS (2)
  1. STELARA [Suspect]
     Indication: PSORIASIS
     Route: 058
  2. STELARA [Suspect]
     Route: 058

REACTIONS (7)
  - SINUS DISORDER [None]
  - PYREXIA [None]
  - GUTTATE PSORIASIS [None]
  - PHARYNGITIS STREPTOCOCCAL [None]
  - INFLUENZA LIKE ILLNESS [None]
  - PAIN [None]
  - HYPERHIDROSIS [None]
